FAERS Safety Report 12131954 (Version 1)
Quarter: 2016Q1

REPORT INFORMATION
  Report Type: Spontaneous
  Country: CN (occurrence: CN)
  Receive Date: 20160301
  Receipt Date: 20160301
  Transmission Date: 20160526
  Serious: Yes (Hospitalization, Other)
  Sender: FDA-Public Use
  Company Number: CN-ASTRAZENECA-2016SE21089

PATIENT
  Age: 25787 Day
  Sex: Female
  Weight: 58 kg

DRUGS (3)
  1. SODIUM CHLORIDE. [Suspect]
     Active Substance: SODIUM CHLORIDE
     Indication: GASTROINTESTINAL HAEMORRHAGE
     Route: 065
     Dates: start: 20150807, end: 20150809
  2. ESOMEPRAZOLE SODIUM. [Suspect]
     Active Substance: ESOMEPRAZOLE SODIUM
     Indication: HYPERCHLORHYDRIA
     Route: 041
     Dates: start: 20150807, end: 20150809
  3. ESOMEPRAZOLE SODIUM. [Suspect]
     Active Substance: ESOMEPRAZOLE SODIUM
     Indication: GASTROINTESTINAL HAEMORRHAGE
     Route: 041
     Dates: start: 20150807, end: 20150809

REACTIONS (7)
  - Blood pressure increased [Recovering/Resolving]
  - Enterobacter test positive [Recovering/Resolving]
  - Chills [Recovering/Resolving]
  - Hyperpyrexia [Recovering/Resolving]
  - Vomiting [Recovering/Resolving]
  - Heart rate increased [Recovering/Resolving]
  - Oxygen saturation decreased [Recovering/Resolving]

NARRATIVE: CASE EVENT DATE: 20150809
